FAERS Safety Report 11260887 (Version 1)
Quarter: 2015Q3

REPORT INFORMATION
  Report Type: Spontaneous
  Country: US (occurrence: US)
  Receive Date: 20150710
  Receipt Date: 20150710
  Transmission Date: 20151125
  Serious: Yes (Hospitalization, Other)
  Sender: FDA-Public Use
  Company Number: US-GLAXOSMITHKLINE-US2015098625

PATIENT
  Age: 68 Year
  Sex: Male

DRUGS (23)
  1. TRIAMCINOLONE CREAM [Concomitant]
  2. ALPRAZOLAM. [Concomitant]
     Active Substance: ALPRAZOLAM
  3. CIALIS [Concomitant]
     Active Substance: TADALAFIL
  4. HYDROXYZINE [Concomitant]
     Active Substance: HYDROXYZINE\HYDROXYZINE HYDROCHLORIDE
  5. ADVAIR DISKUS [Suspect]
     Active Substance: FLUTICASONE PROPIONATE\SALMETEROL XINAFOATE
  6. APIDRA [Concomitant]
     Active Substance: INSULIN GLULISINE
  7. LORTAB (LORATADINE) [Concomitant]
  8. NYSTATIN + TRIAMCINOLONE CREAM [Concomitant]
  9. TAMSULOSIN [Concomitant]
     Active Substance: TAMSULOSIN
  10. TESTOSTERONE. [Concomitant]
     Active Substance: TESTOSTERONE
  11. ADVAIR DISKUS [Suspect]
     Active Substance: FLUTICASONE PROPIONATE\SALMETEROL XINAFOATE
     Indication: CHRONIC OBSTRUCTIVE PULMONARY DISEASE
     Dosage: 1 PUFF(S), BID
     Route: 055
  12. TEMAZEPAM. [Concomitant]
     Active Substance: TEMAZEPAM
  13. TORSEMIDE. [Concomitant]
     Active Substance: TORSEMIDE
  14. VENTOLIN HFA [Suspect]
     Active Substance: ALBUTEROL SULFATE
     Indication: CHRONIC OBSTRUCTIVE PULMONARY DISEASE
     Dosage: 2 PUFF(S), QID
     Route: 055
  15. VITAMIN B12 [Concomitant]
     Active Substance: CYANOCOBALAMIN
  16. LANTUS [Concomitant]
     Active Substance: INSULIN GLARGINE
  17. IPRATROPIUM NASAL SPRAY [Concomitant]
  18. CLOBETASOL [Concomitant]
     Active Substance: CLOBETASOL
  19. GABAPENTIN. [Concomitant]
     Active Substance: GABAPENTIN
  20. POTASSIUM CHLORIDE. [Concomitant]
     Active Substance: POTASSIUM CHLORIDE
  21. ZETIA [Concomitant]
     Active Substance: EZETIMIBE
  22. CLINDAMYCIN GEL [Concomitant]
  23. LEVOTHYROXINE. [Concomitant]
     Active Substance: LEVOTHYROXINE

REACTIONS (1)
  - Diabetic coma [Recovered/Resolved]

NARRATIVE: CASE EVENT DATE: 20150629
